FAERS Safety Report 25294071 (Version 1)
Quarter: 2025Q2

REPORT INFORMATION
  Report Type: Spontaneous
  Country: US (occurrence: US)
  Receive Date: 20250510
  Receipt Date: 20250510
  Transmission Date: 20250717
  Serious: No
  Sender: SANOFI AVENTIS
  Company Number: US-SA-2025SA125507

PATIENT
  Sex: Male
  Weight: 15 kg

DRUGS (12)
  1. CEREZYME [Suspect]
     Active Substance: IMIGLUCERASE
     Indication: Gaucher^s disease
     Dosage: 800 IU, QOW
     Route: 042
  2. ACETAMINOPHEN [Concomitant]
     Active Substance: ACETAMINOPHEN
  3. EPINEPHRINE [Concomitant]
     Active Substance: EPINEPHRINE
  4. STERILE WATER [Concomitant]
     Active Substance: WATER
  5. SODIUM CHLORIDE [Concomitant]
     Active Substance: SODIUM CHLORIDE
  6. VITAMINS NOS [Concomitant]
     Active Substance: VITAMINS
  7. ZYRTEC [Concomitant]
     Active Substance: CETIRIZINE HYDROCHLORIDE
  8. LIDOCAINE [Concomitant]
     Active Substance: LIDOCAINE
  9. DIPHENHYDRAMINE [Concomitant]
     Active Substance: DIPHENHYDRAMINE
  10. SODIUM CHLORIDE [Concomitant]
     Active Substance: SODIUM CHLORIDE
  11. HEPARIN [Concomitant]
     Active Substance: HEPARIN SODIUM
  12. FYCOMPA [Concomitant]
     Active Substance: PERAMPANEL

REACTIONS (2)
  - Rash erythematous [Unknown]
  - Flushing [Unknown]
